FAERS Safety Report 14126619 (Version 7)
Quarter: 2018Q1

REPORT INFORMATION
  Report Type: Spontaneous
  Country: DE (occurrence: DE)
  Receive Date: 20171025
  Receipt Date: 20180221
  Transmission Date: 20180508
  Serious: Yes (Hospitalization)
  Sender: FDA-Public Use
  Company Number: DE-BIOGEN-2017BI00470014

PATIENT
  Age: 37 Year
  Sex: Female
  Weight: 47 kg

DRUGS (1)
  1. ZINBRYTA [Suspect]
     Active Substance: DACLIZUMAB
     Indication: RELAPSING-REMITTING MULTIPLE SCLEROSIS
     Dosage: ADMINISTERED ON: 08 MAR 2017, 04 APR 2017, 04 MAY 2017, 02 JUN 2017, 03 JUL 2017, 08 AUG 2017
     Route: 058
     Dates: start: 20170308, end: 20170808

REACTIONS (10)
  - Dermatitis atopic [Recovered/Resolved]
  - Lymphocyte percentage decreased [Unknown]
  - Dermatitis exfoliative generalised [Recovered/Resolved]
  - Neutrophil percentage increased [Unknown]
  - Thrombophlebitis [Unknown]
  - White blood cell count increased [Unknown]
  - Eczema [Recovered/Resolved]
  - Alanine aminotransferase increased [Unknown]
  - Alopecia [Not Recovered/Not Resolved]
  - Mental disorder [Unknown]

NARRATIVE: CASE EVENT DATE: 20170801
